FAERS Safety Report 5620143-4 (Version None)
Quarter: 2008Q1

REPORT INFORMATION
  Report Type: 
  Country: None (occurrence: None)
  Receive Date: 20080208
  Receipt Date: 20080201
  Transmission Date: 20080703
  Serious: Yes (Hospitalization)
  Sender: FDA-Public Use
  Company Number: GB-ROCHE-545365

PATIENT
  Age: 47 Year
  Sex: Female
  Weight: 94.3 kg

DRUGS (2)
  1. ORLISTAT [Suspect]
     Indication: OBESITY
     Route: 048
     Dates: start: 20070903, end: 20080125
  2. 1 CONCOMITANT DRUG [Concomitant]
     Indication: PAIN
     Dosage: DRUG NAME: COCODAMOL
     Route: 048

REACTIONS (1)
  - NEPHROLITHIASIS [None]
